FAERS Safety Report 6672311-0 (Version None)
Quarter: 2010Q2

REPORT INFORMATION
  Report Type: 
  Country: None (occurrence: None)
  Receive Date: 20100408
  Receipt Date: 20100326
  Transmission Date: 20101027
  Serious: Yes (Disabling, Other)
  Sender: FDA-Public Use
  Company Number: US-JNJFOC-20100308459

PATIENT
  Sex: Male

DRUGS (30)
  1. DOXIL [Suspect]
     Indication: MULTIPLE MYELOMA
     Route: 042
  2. VELCADE [Suspect]
     Indication: MULTIPLE MYELOMA
     Route: 065
  3. LENALIDOMIDE [Suspect]
     Indication: MULTIPLE MYELOMA
     Route: 048
  4. LENALIDOMIDE [Suspect]
     Dosage: DRUG STOPPED DEC-2009
     Route: 048
  5. LENALIDOMIDE [Suspect]
     Route: 048
  6. LENALIDOMIDE [Suspect]
     Route: 048
  7. LENALIDOMIDE [Suspect]
     Dosage: DRUG STOPPED 2010
     Route: 048
  8. CYANOCOBALAMIN [Concomitant]
     Route: 065
  9. NORVASC [Concomitant]
     Route: 048
  10. LISINOPRIL [Concomitant]
     Route: 048
  11. PRILOSEC [Concomitant]
     Route: 048
  12. ALLOPURINOL [Concomitant]
     Route: 048
  13. CETIRIZINE HYDROCHLORIDE [Concomitant]
     Route: 048
  14. PRAVASTATIN [Concomitant]
     Dosage: DRUG DOSAGE- 40 AT BEDTIME
     Route: 065
  15. ZITHROMAX [Concomitant]
     Route: 065
  16. PENTAMIDINE ISETHIONATE [Concomitant]
     Route: 065
  17. COMPAZINE [Concomitant]
     Route: 065
  18. ACYCLOVIR [Concomitant]
     Route: 065
  19. NEXIUM [Concomitant]
     Route: 065
  20. OXYCODONE [Concomitant]
     Route: 065
  21. PERCOCET [Concomitant]
     Route: 065
  22. FISH OIL [Concomitant]
     Route: 065
  23. DIFLUCAN [Concomitant]
     Route: 065
  24. DOXYCYCLINE [Concomitant]
     Route: 065
  25. ERGOCALCIFEROL [Concomitant]
     Route: 065
  26. SWINE FLU VACCINE, MONOVALENT [Concomitant]
     Indication: IMMUNISATION
     Route: 050
  27. INFLUENZA VACCINE [Concomitant]
     Route: 050
  28. ALEVE (CAPLET) [Concomitant]
     Route: 065
  29. HYDROCHOLOROTHIAZIDE/TRIAMTERENE [Concomitant]
     Route: 065
  30. MULTI-VITAMINS [Concomitant]
     Route: 065

REACTIONS (14)
  - ACUTE SINUSITIS [None]
  - ARTHRALGIA [None]
  - ASTHENIA [None]
  - BACK PAIN [None]
  - FATIGUE [None]
  - FLUID RETENTION [None]
  - HERPES ZOSTER [None]
  - INJURY [None]
  - JOINT SWELLING [None]
  - MALAISE [None]
  - NEUROPATHY PERIPHERAL [None]
  - OEDEMA PERIPHERAL [None]
  - OPTIC NEUROPATHY [None]
  - PYREXIA [None]
